FAERS Safety Report 4355001-9 (Version None)
Quarter: 2004Q2

REPORT INFORMATION
  Report Type: 
  Country: None (occurrence: None)
  Receive Date: 20040504
  Receipt Date: 20040426
  Transmission Date: 20050107
  Serious: Yes (Hospitalization)
  Sender: FDA-Public Use
  Company Number: 206058

PATIENT
  Age: 66 Year
  Sex: Male
  Weight: 58 kg

DRUGS (5)
  1. AVASTIN [Suspect]
     Indication: COLORECTAL CANCER METASTATIC
     Dosage: 640 MG, Q2W, INTRAVENOUS
     Route: 042
     Dates: start: 20040311, end: 20040413
  2. IRINOTECAN(IRINOTECAN HYDROCHLORIDE) [Suspect]
     Indication: COLORECTAL CANCER METASTATIC
  3. FLUOROURACIL [Suspect]
     Indication: COLORECTAL CANCER METASTATIC
  4. LEUCOVORIN CALCIUM [Suspect]
     Indication: COLORECTAL CANCER METASTATIC
  5. DILTIAZEM HYDROCHLORIDE [Concomitant]

REACTIONS (2)
  - COLORECTAL CANCER METASTATIC [None]
  - PULMONARY EMBOLISM [None]
